FAERS Safety Report 20216388 (Version 1)
Quarter: 2021Q4

REPORT INFORMATION
  Report Type: Spontaneous
  Country: US (occurrence: None)
  Receive Date: 20211221
  Receipt Date: 20211221
  Transmission Date: 20220303
  Serious: No
  Sender: FDA-Public Use
  Company Number: None

PATIENT
  Age: 52 Year
  Sex: Female
  Weight: 56.25 kg

DRUGS (10)
  1. HIZENTRA [Suspect]
     Active Substance: HUMAN IMMUNOGLOBULIN G
     Indication: Immunodeficiency common variable
     Dosage: FREQUENCY : WEEKLY;?
     Route: 058
     Dates: start: 20211217, end: 20211217
  2. ZYRTEC [Concomitant]
     Active Substance: CETIRIZINE HYDROCHLORIDE
  3. DULERA [Concomitant]
     Active Substance: FORMOTEROL FUMARATE DIHYDRATE\MOMETASONE FUROATE
  4. ALBUTEROL [Concomitant]
     Active Substance: ALBUTEROL
  5. VITAMINS [Concomitant]
     Active Substance: VITAMINS
  6. CURCUMIN [Concomitant]
     Active Substance: CURCUMIN
  7. QUERCETIN [Concomitant]
     Active Substance: QUERCETIN
  8. TOCOTRIENOL [Concomitant]
  9. VITAMIN D [Concomitant]
     Active Substance: VITAMIN D NOS
  10. D-ACETYLCYSTEIN (NAC) [Concomitant]

REACTIONS (4)
  - Injection site urticaria [None]
  - Injection site haemorrhage [None]
  - Injection site pain [None]
  - Recalled product administered [None]

NARRATIVE: CASE EVENT DATE: 20211217
